FAERS Safety Report 6588387-5 (Version None)
Quarter: 2010Q1

REPORT INFORMATION
  Report Type: 
  Country: None (occurrence: None)
  Receive Date: 20100218
  Receipt Date: 20091112
  Transmission Date: 20100710
  Serious: Yes (Other)
  Sender: FDA-Public Use
  Company Number: US-ALLERGAN-0912707US

PATIENT
  Age: 58 Year
  Sex: Female

DRUGS (10)
  1. BOTOX [Suspect]
     Indication: MIGRAINE
     Dosage: 300 UNITS, SINGLE
     Route: 030
     Dates: start: 20090821, end: 20090821
  2. BOTOX [Suspect]
     Indication: DYSTONIA
  3. BONIVA [Concomitant]
  4. PREVACID [Concomitant]
  5. MIRALAX [Concomitant]
  6. OXYCODONE HCL [Concomitant]
  7. CITRACAL [Concomitant]
  8. MAXALT-MLT [Concomitant]
  9. DEPAKOTE [Concomitant]
  10. POLYGAM S/D [Concomitant]

REACTIONS (5)
  - DYSPHAGIA [None]
  - DYSPNOEA [None]
  - HYPOAESTHESIA [None]
  - MUSCULAR WEAKNESS [None]
  - PARAESTHESIA [None]
